FAERS Safety Report 14502362 (Version 1)
Quarter: 2018Q1

REPORT INFORMATION
  Report Type: Spontaneous
  Country: US (occurrence: US)
  Receive Date: 20180208
  Receipt Date: 20180208
  Transmission Date: 20180509
  Serious: No
  Sender: FDA-Public Use
  Company Number: US-ASTRAZENECA-2018SE15630

PATIENT
  Age: 58 Year
  Sex: Female
  Weight: 67.1 kg

DRUGS (2)
  1. RHINOCORT [Suspect]
     Active Substance: BUDESONIDE
     Indication: MULTIPLE ALLERGIES
     Dosage: 2 SPRAY IN EACH NOSTRIL
     Route: 045
     Dates: start: 20180116, end: 20180116
  2. RHINOCORT [Suspect]
     Active Substance: BUDESONIDE
     Indication: SPEECH DISORDER
     Dosage: 2 SPRAY IN EACH NOSTRIL
     Route: 045
     Dates: start: 20180116, end: 20180116

REACTIONS (3)
  - Product use in unapproved indication [Recovered/Resolved]
  - Abnormal dreams [Recovered/Resolved]
  - Off label use [Recovered/Resolved]

NARRATIVE: CASE EVENT DATE: 20180116
